FAERS Safety Report 4398301-9 (Version None)
Quarter: 2004Q3

REPORT INFORMATION
  Report Type: 
  Country: None (occurrence: None)
  Receive Date: 20040712
  Receipt Date: 20040629
  Transmission Date: 20050211
  Serious: Yes (Life-Threatening, Hospitalization)
  Sender: FDA-Public Use
  Company Number: JP-JNJFOC-20040504234

PATIENT
  Age: 63 Year
  Sex: Male
  Weight: 62 kg

DRUGS (11)
  1. REMICADE [Suspect]
     Indication: RHEUMATOID ARTHRITIS
     Dosage: 3 MG/KG, 1 IN 1 AS NECESSARY, INTRAVENOUS DRIP
     Route: 041
     Dates: start: 20031021, end: 20031021
  2. REMICADE [Suspect]
     Indication: RHEUMATOID ARTHRITIS
     Dosage: 3 MG/KG, 1 IN 1 AS NECESSARY, INTRAVENOUS DRIP
     Route: 041
     Dates: start: 20031104, end: 20031104
  3. REMICADE [Suspect]
     Indication: RHEUMATOID ARTHRITIS
     Dosage: 3 MG/KG, 1 IN 1 AS NECESSARY, INTRAVENOUS DRIP
     Route: 041
     Dates: start: 20031202, end: 20031202
  4. REMICADE [Suspect]
     Indication: RHEUMATOID ARTHRITIS
     Dosage: 3 MG/KG, 1 IN 1 AS NECESSARY, INTRAVENOUS DRIP
     Route: 041
     Dates: start: 20040127, end: 20040127
  5. REMICADE [Suspect]
     Indication: RHEUMATOID ARTHRITIS
     Dosage: 3 MG/KG, 1 IN 1 AS NECESSARY, INTRAVENOUS DRIP
     Route: 041
     Dates: start: 20040402, end: 20040402
  6. RHEUMATREX [Suspect]
     Dosage: SEE IMAGE ORAL
     Route: 048
     Dates: start: 19990220, end: 20020602
  7. RHEUMATREX [Suspect]
     Dosage: SEE IMAGE ORAL
     Route: 048
     Dates: start: 20020603, end: 20030807
  8. RHEUMATREX [Suspect]
     Dosage: SEE IMAGE ORAL
     Route: 048
     Dates: start: 20030808, end: 20030926
  9. RHEUMATREX [Suspect]
     Dosage: SEE IMAGE ORAL
     Route: 048
     Dates: start: 20030927, end: 20040513
  10. PREDNISOLONE (TABLETS) PREDNISOLONE [Concomitant]
  11. MOBIC [Concomitant]

REACTIONS (5)
  - DRUG INTERACTION [None]
  - HEADACHE [None]
  - LABORATORY TEST ABNORMAL [None]
  - PNEUMOCYSTIS CARINII INFECTION [None]
  - PNEUMONIA [None]
